FAERS Safety Report 5264243-X (Version None)
Quarter: 2007Q1

REPORT INFORMATION
  Report Type: 
  Country: None (occurrence: None)
  Receive Date: 20070313
  Receipt Date: 20070305
  Transmission Date: 20070707
  Serious: Yes (Death)
  Sender: FDA-Public Use
  Company Number: DE-SHR-DE-2005-020618

PATIENT
  Age: 46 Year
  Sex: Male

DRUGS (2)
  1. ULTRAVIST (PHARMACY BULK) [Suspect]
     Dosage: UNK, 1 DOSE
     Dates: start: 20040907, end: 20040907
  2. GASTROGRAFIN (ORAL) [Suspect]
     Dosage: UNK, 1 DOSE
     Dates: start: 20040907, end: 20040907

REACTIONS (2)
  - CARDIAC FAILURE [None]
  - NAUSEA [None]
